FAERS Safety Report 22701776 (Version 3)
Quarter: 2024Q1

REPORT INFORMATION
  Report Type: Spontaneous
  Country: IT (occurrence: IT)
  Receive Date: 20230713
  Receipt Date: 20240314
  Transmission Date: 20240409
  Serious: Yes (Other)
  Sender: FDA-Public Use
  Company Number: IT-SUN PHARMACEUTICAL INDUSTRIES LTD-2023RR-397362

PATIENT
  Age: 52 Year
  Sex: Female

DRUGS (6)
  1. FENOFIBRATE [Suspect]
     Active Substance: FENOFIBRATE
     Indication: Product used for unknown indication
     Dosage: 145 MILLIGRAM, QD
     Route: 065
  2. FENOFIBRATE [Suspect]
     Active Substance: FENOFIBRATE
     Route: 065
     Dates: end: 2020
  3. ASPIRIN [Suspect]
     Active Substance: ASPIRIN
     Indication: Product used for unknown indication
     Route: 065
  4. HYDROCHLOROTHIAZIDE\RAMIPRIL [Suspect]
     Active Substance: HYDROCHLOROTHIAZIDE\RAMIPRIL
     Indication: Product used for unknown indication
     Route: 065
  5. CYCLOSPORINE [Suspect]
     Active Substance: CYCLOSPORINE
     Indication: Steroid therapy
     Dosage: 75 MG + 50 MG/DAILY
     Route: 065
  6. METHYLPREDNISOLONE [Suspect]
     Active Substance: METHYLPREDNISOLONE
     Indication: Product used for unknown indication
     Dosage: UNK
     Route: 065

REACTIONS (2)
  - Disease recurrence [Recovering/Resolving]
  - Condition aggravated [Recovering/Resolving]
